FAERS Safety Report 19468659 (Version 1)
Quarter: 2021Q2

REPORT INFORMATION
  Report Type: Report from Study
  Country: AU (occurrence: AU)
  Receive Date: 20210628
  Receipt Date: 20210628
  Transmission Date: 20210717
  Serious: Yes (Hospitalization, Other)
  Sender: FDA-Public Use
  Company Number: AU-BRISTOL-MYERS SQUIBB COMPANY-BMS-2021-061352

PATIENT
  Age: 82 Year
  Sex: Male
  Weight: 68.4 kg

DRUGS (2)
  1. NIVOLUMAB [Suspect]
     Active Substance: NIVOLUMAB
     Indication: GASTROOESOPHAGEAL CANCER
     Dosage: 240 MILLIGRAM
     Route: 042
     Dates: start: 20210603, end: 20210617
  2. REGORAFENIB. [Suspect]
     Active Substance: REGORAFENIB
     Indication: GASTROOESOPHAGEAL CANCER
     Dosage: 90 MILLIGRAM
     Route: 048
     Dates: start: 20210603, end: 20210621

REACTIONS (2)
  - Pneumonitis [Unknown]
  - Gastrointestinal haemorrhage [Unknown]

NARRATIVE: CASE EVENT DATE: 20210621
